FAERS Safety Report 5208862-5 (Version None)
Quarter: 2007Q1

REPORT INFORMATION
  Report Type: 
  Country: None (occurrence: None)
  Receive Date: 20070111
  Receipt Date: 20070111
  Transmission Date: 20070707
  Serious: Yes (Hospitalization)
  Sender: FDA-Public Use
  Company Number: None

PATIENT
  Age: 44 Year
  Sex: Male
  Weight: 67.1324 kg

DRUGS (1)
  1. COMMIT LOZENGE  4MG GLAXOSMITH KLINE [Suspect]
     Indication: SMOKING CESSATION THERAPY
     Dosage: 4 MG STEP DOWN METHOD PO
     Route: 048
     Dates: start: 20060901, end: 20060912

REACTIONS (8)
  - DRUG EFFECT DECREASED [None]
  - DRUG INEFFECTIVE [None]
  - MIGRAINE [None]
  - NAUSEA [None]
  - PHONOPHOBIA [None]
  - PHOTOPHOBIA [None]
  - VISUAL DISTURBANCE [None]
  - VOMITING [None]
